FAERS Safety Report 21909405 (Version 1)
Quarter: 2023Q1

REPORT INFORMATION
  Report Type: Spontaneous
  Country: US (occurrence: US)
  Receive Date: 20230125
  Receipt Date: 20230125
  Transmission Date: 20230417
  Serious: Yes (Other)
  Sender: FDA-Public Use
  Company Number: US-PFIZER INC-PV202300013889

PATIENT
  Age: 81 Year
  Sex: Female

DRUGS (3)
  1. IBRANCE [Suspect]
     Active Substance: PALBOCICLIB
     Dosage: EVERY OTHER DAY
  2. IBRANCE [Suspect]
     Active Substance: PALBOCICLIB
     Dosage: EVERY OTHER DAY
     Dates: start: 202211
  3. IBRANCE [Suspect]
     Active Substance: PALBOCICLIB
     Dosage: EVERY OTHER DAY

REACTIONS (2)
  - Red blood cell count decreased [Unknown]
  - Asthenia [Unknown]
